FAERS Safety Report 4615836-1 (Version None)
Quarter: 2005Q1

REPORT INFORMATION
  Report Type: 
  Country: None (occurrence: None)
  Receive Date: 20050321
  Receipt Date: 20050303
  Transmission Date: 20050727
  Serious: Yes (Other)
  Sender: FDA-Public Use
  Company Number: TRP_0078_2005

PATIENT
  Age: 43 Year
  Sex: Male
  Weight: 136.0791 kg

DRUGS (14)
  1. RIBASPHERE [Suspect]
     Indication: HEPATITIS C
     Dates: start: 20040609, end: 20050123
  2. PEG-INTRON [Suspect]
     Indication: HEPATITIS C
     Dates: start: 20040609, end: 20050123
  3. EPIVIR [Concomitant]
  4. FOLIC ACID [Concomitant]
  5. HYDROCORTISONE CREAM [Concomitant]
  6. MECLIZINE [Concomitant]
  7. MS CONTIN [Concomitant]
  8. MS CONTIN [Concomitant]
  9. MULTI-VITAMINS [Concomitant]
  10. PREVACID [Concomitant]
  11. RESTORIL [Concomitant]
  12. SUSTIVA [Concomitant]
  13. ZERIT [Concomitant]
  14. ZOLOFT [Concomitant]

REACTIONS (3)
  - CENTRAL LINE INFECTION [None]
  - TOOTH FRACTURE [None]
  - TOOTH LOSS [None]
